FAERS Safety Report 13835246 (Version 1)
Quarter: 2017Q3

REPORT INFORMATION
  Report Type: Spontaneous
  Country: IT (occurrence: IT)
  Receive Date: 20170804
  Receipt Date: 20170804
  Transmission Date: 20171127
  Serious: Yes (Other)
  Sender: FDA-Public Use
  Company Number: IT-ACCORD-056605

PATIENT
  Age: 69 Year
  Sex: Male
  Weight: 80 kg

DRUGS (13)
  1. DOCETAXEL ACCORD [Suspect]
     Active Substance: DOCETAXEL
     Indication: PROSTATE CANCER
     Route: 041
     Dates: start: 20170719
  2. ONDANSETRON [Concomitant]
     Active Substance: ONDANSETRON
     Indication: ANTIEMETIC SUPPORTIVE CARE
     Route: 041
     Dates: start: 20170719, end: 20170719
  3. RANITIDINE. [Concomitant]
     Active Substance: RANITIDINE
     Indication: SUPPLEMENTATION THERAPY
     Route: 041
     Dates: start: 20170719, end: 20170719
  4. DEXAMETHASONE. [Concomitant]
     Active Substance: DEXAMETHASONE
     Indication: SUPPLEMENTATION THERAPY
     Route: 041
     Dates: start: 20170719, end: 20170719
  5. TACHIDOL [Concomitant]
     Active Substance: ACETAMINOPHEN\CODEINE PHOSPHATE
  6. ENANTONE LP [Concomitant]
     Active Substance: LEUPROLIDE ACETATE
     Dates: start: 201505
  7. PANTOPRAZOLE [Concomitant]
     Active Substance: PANTOPRAZOLE
  8. ABIRATERONE [Concomitant]
     Active Substance: ABIRATERONE
     Indication: METASTASES TO BONE
  9. MOVICOL [Concomitant]
     Active Substance: POLYETHYLENE GLYCOL 3350\POTASSIUM CHLORIDE\SODIUM BICARBONATE\SODIUM CHLORIDE
  10. BICALUTAMIDE. [Concomitant]
     Active Substance: BICALUTAMIDE
     Dates: start: 201505
  11. DELTACORTENE [Concomitant]
     Active Substance: PREDNISONE
     Indication: METASTASES TO BONE
  12. HYDROCHLOROTHIAZIDE /OLMESARTAN [Concomitant]
     Active Substance: HYDROCHLOROTHIAZIDE\OLMESARTAN MEDOXOMIL
  13. CHLORPHENAMINE [Concomitant]
     Active Substance: CHLORPHENIRAMINE MALEATE
     Indication: SUPPLEMENTATION THERAPY
     Route: 041
     Dates: start: 20170719, end: 20170719

REACTIONS (2)
  - Flushing [Recovered/Resolved]
  - Obstructive airways disorder [Recovered/Resolved]

NARRATIVE: CASE EVENT DATE: 20170719
